FAERS Safety Report 4347633-9 (Version None)
Quarter: 2004Q2

REPORT INFORMATION
  Report Type: 
  Country: None (occurrence: None)
  Receive Date: 20040422
  Receipt Date: 20040412
  Transmission Date: 20050107
  Serious: Yes (Other)
  Sender: FDA-Public Use
  Company Number: 2004025375

PATIENT
  Age: 60 Year
  Sex: Male
  Weight: 78.0187 kg

DRUGS (5)
  1. TIKOSYN [Suspect]
     Indication: ATRIAL FIBRILLATION
     Dosage: 1000 MCG (BID), ORAL
     Route: 048
     Dates: start: 20030101
  2. AMOXICILLIN [Suspect]
     Indication: DYSPNOEA
     Dosage: UNKNOWN
     Dates: start: 20040401
  3. SERETIDE MITE (FLUTICASONE PROPIONATE, SALMETEROL XINAFOATE) [Concomitant]
  4. IPRATROPIUM BROMIDE [Concomitant]
  5. ALL OTHER THERAPEUTIC PRODUCTS (ALL OTHER THERAPEUTIC PRODUCTS) [Concomitant]

REACTIONS (6)
  - CHEST PAIN [None]
  - DRUG INTERACTION [None]
  - DYSPNOEA [None]
  - ERYTHEMA [None]
  - EYE SWELLING [None]
  - LOSS OF CONSCIOUSNESS [None]
